FAERS Safety Report 25160703 (Version 1)
Quarter: 2025Q2

REPORT INFORMATION
  Report Type: Spontaneous
  Country: US (occurrence: US)
  Receive Date: 20250404
  Receipt Date: 20250404
  Transmission Date: 20250716
  Serious: No
  Sender: MYLAN
  Company Number: US-MYLANLABS-2025M1025271

PATIENT
  Age: 45 Year
  Sex: Female
  Weight: 90.72 kg

DRUGS (40)
  1. ESTRADIOL TRANSDERMAL SYSTEM [Suspect]
     Active Substance: ESTRADIOL
     Indication: Hot flush
     Dosage: 0.1 MILLIGRAM, QD (ONCE WEEKLY)
     Dates: start: 20250310
  2. ESTRADIOL TRANSDERMAL SYSTEM [Suspect]
     Active Substance: ESTRADIOL
     Indication: Menopause
     Dosage: 0.1 MILLIGRAM, QD (ONCE WEEKLY)
     Route: 062
     Dates: start: 20250310
  3. ESTRADIOL TRANSDERMAL SYSTEM [Suspect]
     Active Substance: ESTRADIOL
     Dosage: 0.1 MILLIGRAM, QD (ONCE WEEKLY)
     Route: 062
     Dates: start: 20250310
  4. ESTRADIOL TRANSDERMAL SYSTEM [Suspect]
     Active Substance: ESTRADIOL
     Dosage: 0.1 MILLIGRAM, QD (ONCE WEEKLY)
     Dates: start: 20250310
  5. ADDERALL [Concomitant]
     Active Substance: AMPHETAMINE ASPARTATE\AMPHETAMINE SULFATE\DEXTROAMPHETAMINE SACCHARATE\DEXTROAMPHETAMINE SULFATE
  6. ADDERALL [Concomitant]
     Active Substance: AMPHETAMINE ASPARTATE\AMPHETAMINE SULFATE\DEXTROAMPHETAMINE SACCHARATE\DEXTROAMPHETAMINE SULFATE
     Route: 065
  7. ADDERALL [Concomitant]
     Active Substance: AMPHETAMINE ASPARTATE\AMPHETAMINE SULFATE\DEXTROAMPHETAMINE SACCHARATE\DEXTROAMPHETAMINE SULFATE
     Route: 065
  8. ADDERALL [Concomitant]
     Active Substance: AMPHETAMINE ASPARTATE\AMPHETAMINE SULFATE\DEXTROAMPHETAMINE SACCHARATE\DEXTROAMPHETAMINE SULFATE
  9. VITAMIN B12 [Concomitant]
     Active Substance: CYANOCOBALAMIN
  10. VITAMIN B12 [Concomitant]
     Active Substance: CYANOCOBALAMIN
     Route: 065
  11. VITAMIN B12 [Concomitant]
     Active Substance: CYANOCOBALAMIN
     Route: 065
  12. VITAMIN B12 [Concomitant]
     Active Substance: CYANOCOBALAMIN
  13. VITAMIN D [Concomitant]
     Active Substance: VITAMIN D NOS
  14. VITAMIN D [Concomitant]
     Active Substance: VITAMIN D NOS
     Route: 065
  15. VITAMIN D [Concomitant]
     Active Substance: VITAMIN D NOS
     Route: 065
  16. VITAMIN D [Concomitant]
     Active Substance: VITAMIN D NOS
  17. CALCIUM [Concomitant]
     Active Substance: CALCIUM
  18. CALCIUM [Concomitant]
     Active Substance: CALCIUM
     Route: 065
  19. CALCIUM [Concomitant]
     Active Substance: CALCIUM
     Route: 065
  20. CALCIUM [Concomitant]
     Active Substance: CALCIUM
  21. HYDROCORTISONE [Concomitant]
     Active Substance: HYDROCORTISONE
  22. HYDROCORTISONE [Concomitant]
     Active Substance: HYDROCORTISONE
     Route: 065
  23. HYDROCORTISONE [Concomitant]
     Active Substance: HYDROCORTISONE
     Route: 065
  24. HYDROCORTISONE [Concomitant]
     Active Substance: HYDROCORTISONE
  25. JARDIANCE [Concomitant]
     Active Substance: EMPAGLIFLOZIN
  26. JARDIANCE [Concomitant]
     Active Substance: EMPAGLIFLOZIN
     Route: 065
  27. JARDIANCE [Concomitant]
     Active Substance: EMPAGLIFLOZIN
     Route: 065
  28. JARDIANCE [Concomitant]
     Active Substance: EMPAGLIFLOZIN
  29. HYDROCODONE [Concomitant]
     Active Substance: HYDROCODONE
  30. HYDROCODONE [Concomitant]
     Active Substance: HYDROCODONE
     Route: 065
  31. HYDROCODONE [Concomitant]
     Active Substance: HYDROCODONE
     Route: 065
  32. HYDROCODONE [Concomitant]
     Active Substance: HYDROCODONE
  33. TEGRETOL [Concomitant]
     Active Substance: CARBAMAZEPINE
  34. TEGRETOL [Concomitant]
     Active Substance: CARBAMAZEPINE
     Route: 065
  35. TEGRETOL [Concomitant]
     Active Substance: CARBAMAZEPINE
     Route: 065
  36. TEGRETOL [Concomitant]
     Active Substance: CARBAMAZEPINE
  37. CLONAZEPAM [Concomitant]
     Active Substance: CLONAZEPAM
  38. CLONAZEPAM [Concomitant]
     Active Substance: CLONAZEPAM
     Route: 065
  39. CLONAZEPAM [Concomitant]
     Active Substance: CLONAZEPAM
     Route: 065
  40. CLONAZEPAM [Concomitant]
     Active Substance: CLONAZEPAM

REACTIONS (3)
  - Device difficult to use [Unknown]
  - Product administered at inappropriate site [Unknown]
  - Product adhesion issue [Unknown]

NARRATIVE: CASE EVENT DATE: 20250310
